FAERS Safety Report 24622327 (Version 1)
Quarter: 2024Q4

REPORT INFORMATION
  Report Type: Spontaneous
  Country: US (occurrence: US)
  Receive Date: 20241115
  Receipt Date: 20241115
  Transmission Date: 20250114
  Serious: No
  Sender: GLENMARK
  Company Number: US-GLENMARK PHARMACEUTICALS-2024GMK090753

PATIENT

DRUGS (2)
  1. CICLOPIROX OLAMINE [Suspect]
     Active Substance: CICLOPIROX OLAMINE
     Indication: Tinea pedis
     Dosage: UNK, OD
     Route: 061
     Dates: start: 20240418
  2. B12 [Concomitant]
     Indication: Product used for unknown indication
     Dosage: UNK, ONCE A MONTH
     Route: 065

REACTIONS (5)
  - Sleep disorder due to general medical condition, insomnia type [Unknown]
  - Vulvovaginal burning sensation [Not Recovered/Not Resolved]
  - Perineal pain [Not Recovered/Not Resolved]
  - Application site pain [Unknown]
  - Product use issue [Unknown]

NARRATIVE: CASE EVENT DATE: 20240418
